FAERS Safety Report 7443829-8 (Version None)
Quarter: 2011Q2

REPORT INFORMATION
  Report Type: 
  Country: None (occurrence: None)
  Receive Date: 20110428
  Receipt Date: 20110421
  Transmission Date: 20111010
  Serious: Yes (Hospitalization)
  Sender: FDA-Public Use
  Company Number: US-GENENTECH-313798

PATIENT
  Sex: Female
  Weight: 68 kg

DRUGS (2)
  1. INHALER (TYPE UNKNOWN) [Concomitant]
     Indication: ASTHMA
  2. XOLAIR [Suspect]
     Indication: ASTHMA
     Dosage: 300 MG, UNK
     Route: 030
     Dates: start: 20110126

REACTIONS (6)
  - FATIGUE [None]
  - VIRAL INFECTION [None]
  - ASTHMA [None]
  - PYREXIA [None]
  - OROPHARYNGEAL PAIN [None]
  - PAIN [None]
